FAERS Safety Report 12930169 (Version 1)
Quarter: 2016Q4

REPORT INFORMATION
  Report Type: Spontaneous
  Country: US (occurrence: US)
  Receive Date: 20161111
  Receipt Date: 20161111
  Transmission Date: 20170207
  Serious: Yes (Other)
  Sender: FDA-Public Use
  Company Number: None

PATIENT
  Age: 30 Year
  Sex: Female
  Weight: 54 kg

DRUGS (1)
  1. SERTRALINE 50MG [Suspect]
     Active Substance: SERTRALINE HYDROCHLORIDE
     Indication: ANXIETY
     Dosage: ?          QUANTITY:2 TABLET(S);?
     Route: 048
     Dates: start: 20161001, end: 20161109

REACTIONS (5)
  - Sleep disorder due to general medical condition, insomnia type [None]
  - Product substitution issue [None]
  - Headache [None]
  - Panic attack [None]
  - Paradoxical drug reaction [None]

NARRATIVE: CASE EVENT DATE: 20161002
